FAERS Safety Report 16187222 (Version 2)
Quarter: 2019Q2

REPORT INFORMATION
  Report Type: Report from Study
  Country: None (occurrence: CO)
  Receive Date: 20190411
  Receipt Date: 20190507
  Transmission Date: 20190711
  Serious: Yes (Hospitalization, Other)
  Sender: FDA-Public Use
  Company Number: CO-ABBVIE-19K-036-2738134-00

PATIENT
  Age: 35 Year
  Sex: Male
  Weight: 59 kg

DRUGS (2)
  1. MESALAZINE [Concomitant]
     Active Substance: MESALAMINE
     Indication: PRODUCT USED FOR UNKNOWN INDICATION
  2. HUMIRA [Suspect]
     Active Substance: ADALIMUMAB
     Indication: COLITIS ULCERATIVE
     Route: 058
     Dates: start: 20180220, end: 20181118

REACTIONS (8)
  - Intestinal mass [Unknown]
  - Asthenia [Unknown]
  - Malaise [Unknown]
  - Anal fistula [Unknown]
  - Abnormal behaviour [Unknown]
  - Perineal abscess [Unknown]
  - Colitis ulcerative [Unknown]
  - Pain [Recovered/Resolved]

NARRATIVE: CASE EVENT DATE: 2019
